FAERS Safety Report 21925169 (Version 1)
Quarter: 2023Q1

REPORT INFORMATION
  Report Type: Spontaneous
  Country: AU (occurrence: AU)
  Receive Date: 20230130
  Receipt Date: 20230130
  Transmission Date: 20230417
  Serious: Yes (Life-Threatening, Hospitalization, Other)
  Sender: FDA-Public Use
  Company Number: AU-STRIDES ARCOLAB LIMITED-2023SP001332

PATIENT
  Age: 6 Decade
  Sex: Male

DRUGS (8)
  1. PREDNISOLONE [Suspect]
     Active Substance: PREDNISOLONE
     Indication: Diffuse large B-cell lymphoma stage II
     Dosage: UNK, SINGLE (INDUCTION CHEMOTHERAPY)
     Route: 065
  2. PREDNISOLONE [Suspect]
     Active Substance: PREDNISOLONE
     Dosage: 15 MILLIGRAM, UNKNOWN
     Route: 065
  3. METHOTREXATE [Suspect]
     Active Substance: METHOTREXATE
     Indication: Diffuse large B-cell lymphoma stage II
     Dosage: UNK, SINGLE (INDUCTION CHEMOTHERAPY)
     Route: 065
  4. CYCLOPHOSPHAMIDE [Suspect]
     Active Substance: CYCLOPHOSPHAMIDE
     Indication: Diffuse large B-cell lymphoma stage II
     Dosage: UNK, SINGLE (INDUCTION CHEMOTHERAPY)
     Route: 065
  5. GEMCITABINE [Suspect]
     Active Substance: GEMCITABINE
     Indication: Diffuse large B-cell lymphoma stage II
     Dosage: UNK (SALVAGE TREATMENT )
     Route: 065
  6. IMATINIB [Suspect]
     Active Substance: IMATINIB
     Indication: Diffuse large B-cell lymphoma stage II
     Dosage: UNK
     Route: 065
  7. RUXOLITINIB [Suspect]
     Active Substance: RUXOLITINIB
     Indication: Diffuse large B-cell lymphoma stage II
     Dosage: UNK
     Route: 065
  8. VINCRISTINE [Suspect]
     Active Substance: VINCRISTINE
     Indication: Diffuse large B-cell lymphoma stage II
     Dosage: UNK (SALVAGE TREATMENT)
     Route: 065

REACTIONS (8)
  - Hyperammonaemia [Recovered/Resolved]
  - Hyperammonaemic encephalopathy [Recovered/Resolved]
  - Respiratory alkalosis [Recovered/Resolved]
  - Hypertension [Recovered/Resolved]
  - Mycoplasma infection [Unknown]
  - Ureaplasma infection [Unknown]
  - Arthritis bacterial [Unknown]
  - Therapy partial responder [Unknown]
